FAERS Safety Report 7343402-6 (Version None)
Quarter: 2011Q1

REPORT INFORMATION
  Report Type: 
  Country: None (occurrence: None)
  Receive Date: 20110308
  Receipt Date: 20110308
  Transmission Date: 20110831
  Serious: Yes (Other)
  Sender: FDA-Public Use
  Company Number: None

PATIENT
  Sex: Male
  Weight: 68.0396 kg

DRUGS (1)
  1. EFFEXOR XR [Suspect]
     Indication: PANIC DISORDER
     Dosage: 150 MG CAP 1 DAILY PO
     Route: 048
     Dates: start: 20040201, end: 20110301

REACTIONS (10)
  - INSOMNIA [None]
  - PALPITATIONS [None]
  - PARAESTHESIA [None]
  - HALLUCINATION, AUDITORY [None]
  - SEROTONIN SYNDROME [None]
  - MUSCLE SPASMS [None]
  - MOOD ALTERED [None]
  - DRUG WITHDRAWAL SYNDROME [None]
  - AGITATION [None]
  - NERVOUS SYSTEM DISORDER [None]
